FAERS Safety Report 15035746 (Version 1)
Quarter: 2018Q2

REPORT INFORMATION
  Report Type: Spontaneous
  Country: US (occurrence: US)
  Receive Date: 20180620
  Receipt Date: 20180620
  Transmission Date: 20180711
  Serious: Yes (Other)
  Sender: FDA-Public Use
  Company Number: US-PFIZER INC-2018245499

PATIENT
  Age: 43 Year
  Sex: Male
  Weight: 101 kg

DRUGS (5)
  1. CELECOXIB. [Suspect]
     Active Substance: CELECOXIB
     Indication: LUMBAR RADICULOPATHY
     Dosage: 200 MG CAPSULE BY MOUTH ONCE A DAY
     Route: 048
     Dates: start: 20180604
  2. CELECOXIB. [Suspect]
     Active Substance: CELECOXIB
     Indication: INTERVERTEBRAL DISC DEGENERATION
  3. GABAPENTIN. [Concomitant]
     Active Substance: GABAPENTIN
     Indication: INTERVERTEBRAL DISC DEGENERATION
  4. TORADOL [Concomitant]
     Active Substance: KETOROLAC TROMETHAMINE
     Indication: CONDITION AGGRAVATED
     Dosage: 10 MG TABLET EVERY 8 HOURS, AS NEEDED
     Route: 048
     Dates: start: 20180604
  5. GABAPENTIN. [Concomitant]
     Active Substance: GABAPENTIN
     Indication: LUMBAR RADICULOPATHY
     Dosage: 300 MG, 3X/DAY
     Route: 048

REACTIONS (2)
  - Rash [Recovered/Resolved]
  - Skin irritation [Recovered/Resolved]

NARRATIVE: CASE EVENT DATE: 201806
